FAERS Safety Report 4990467-2 (Version None)
Quarter: 2006Q2

REPORT INFORMATION
  Report Type: 
  Country: None (occurrence: None)
  Receive Date: 20060427
  Receipt Date: 20060417
  Transmission Date: 20061013
  Serious: Yes (Hospitalization)
  Sender: FDA-Public Use
  Company Number: 200604027

PATIENT
  Age: 70 Year
  Sex: Male

DRUGS (8)
  1. BOTOX [Suspect]
     Indication: MUSCLE SPASTICITY
  2. BOTOX [Suspect]
     Indication: MUSCLE SPASTICITY
  3. COUMADIN [Concomitant]
  4. DILANTIN [Concomitant]
  5. ELAVIL [Concomitant]
  6. INSULIN [Concomitant]
  7. ANTIBIOTIC (UNSPECIFIED) [Concomitant]
  8. HEART MEDICATION (UNSPECIFIED) [Concomitant]

REACTIONS (10)
  - APHAGIA [None]
  - CARDIAC FAILURE CONGESTIVE [None]
  - DEHYDRATION [None]
  - DIARRHOEA [None]
  - DYSPHAGIA [None]
  - HYPOTENSION [None]
  - MENTAL STATUS CHANGES [None]
  - PNEUMONIA ASPIRATION [None]
  - POSTURE ABNORMAL [None]
  - WEIGHT DECREASED [None]
